FAERS Safety Report 7515310-9 (Version None)
Quarter: 2011Q2

REPORT INFORMATION
  Report Type: 
  Country: None (occurrence: None)
  Receive Date: 20110601
  Receipt Date: 20110523
  Transmission Date: 20111010
  Serious: Yes (Other)
  Sender: FDA-Public Use
  Company Number: US-ELI_LILLY_AND_COMPANY-US201104005185

PATIENT
  Sex: Female

DRUGS (8)
  1. ISOSORBIDE DINITRATE [Concomitant]
     Dosage: 60 MG, QD
     Route: 065
  2. EFFIENT [Suspect]
     Indication: THROMBOSIS IN DEVICE
     Dosage: 10 MG, QD
  3. LISINOPRIL [Concomitant]
     Dosage: 40 MG, BID
     Route: 065
  4. CATAPRES - SLOW RELEASE [Concomitant]
     Dosage: 2 MG, WEEKLY (1/W)
     Route: 065
  5. ASPIRIN [Concomitant]
     Dosage: 81 MG, QD
     Route: 065
  6. CLONIDINE [Concomitant]
     Indication: HYPERTENSION
     Dosage: 1 MG, PRN
     Route: 065
  7. MIRALAX [Concomitant]
     Dosage: UNK, BID
     Route: 065
  8. STOOL SOFTENER [Concomitant]
     Dosage: UNK, QD
     Route: 065

REACTIONS (8)
  - THROMBOSIS IN DEVICE [None]
  - HEADACHE [None]
  - DRUG DOSE OMISSION [None]
  - CONTUSION [None]
  - WEIGHT DECREASED [None]
  - NODULE [None]
  - STENT MALFUNCTION [None]
  - MALAISE [None]
